FAERS Safety Report 5813918-X (Version None)
Quarter: 2008Q3

REPORT INFORMATION
  Report Type: 
  Country: None (occurrence: None)
  Receive Date: 20080717
  Receipt Date: 20080709
  Transmission Date: 20090109
  Serious: Yes (Other)
  Sender: FDA-Public Use
  Company Number: US-WYE-H05011208

PATIENT
  Sex: Female

DRUGS (3)
  1. PREMARIN [Suspect]
  2. PROVERA [Suspect]
  3. MEDROXYPROGESTERONE [Suspect]

REACTIONS (1)
  - BREAST CANCER [None]
